FAERS Safety Report 12417931 (Version 1)
Quarter: 2016Q2

REPORT INFORMATION
  Report Type: Spontaneous
  Country: US (occurrence: US)
  Receive Date: 20160531
  Receipt Date: 20160531
  Transmission Date: 20160815
  Serious: No
  Sender: FDA-Public Use
  Company Number: US-ASTRAZENECA-2016SE39115

PATIENT
  Age: 24702 Day
  Sex: Female
  Weight: 86.2 kg

DRUGS (9)
  1. CALCIUM AND MAGNESUEM [Concomitant]
     Dosage: DAILY
  2. FLAGYL [Concomitant]
     Active Substance: METRONIDAZOLE\METRONIDAZOLE HYDROCHLORIDE
     Indication: VULVOVAGINAL DISCOMFORT
  3. ADVAIR HFA [Concomitant]
     Active Substance: FLUTICASONE PROPIONATE\SALMETEROL XINAFOATE
     Indication: ASTHMA
     Dosage: DAILY
  4. VENTOLIN [Concomitant]
     Active Substance: ALBUTEROL SULFATE
     Indication: DYSPNOEA
     Dosage: AS REQUIRED
  5. RHINOCORT AQUA [Suspect]
     Active Substance: BUDESONIDE
     Indication: UPPER-AIRWAY COUGH SYNDROME
     Dosage: 32 MCG 2 SPRAYS PER NOSTRIL IN THE MORNING
     Route: 045
  6. VITAMIN C [Concomitant]
     Active Substance: ASCORBIC ACID
     Dosage: 3000, DAILY
  7. SYNTHROID [Concomitant]
     Active Substance: LEVOTHYROXINE SODIUM
     Indication: HORMONE THERAPY
     Dosage: 50MCG TABS DAILY
  8. RHINOCORT [Suspect]
     Active Substance: BUDESONIDE
     Indication: UPPER-AIRWAY COUGH SYNDROME
     Dosage: 32MCG 2 SPRAYS PER NOSTRIL
     Route: 045
     Dates: start: 20160410
  9. IBUPROPHEN [Concomitant]
     Active Substance: IBUPROFEN
     Indication: ORAL PAIN
     Dosage: 800MG, WHEN NECESSARY

REACTIONS (5)
  - Device issue [Unknown]
  - Head discomfort [Unknown]
  - Weight fluctuation [Unknown]
  - Eye pain [Unknown]
  - Upper-airway cough syndrome [Unknown]

NARRATIVE: CASE EVENT DATE: 20160410
